FAERS Safety Report 5282217-X (Version None)
Quarter: 2007Q1

REPORT INFORMATION
  Report Type: 
  Country: None (occurrence: None)
  Receive Date: 20070330
  Receipt Date: 20070320
  Transmission Date: 20070707
  Serious: Yes (Other)
  Sender: FDA-Public Use
  Company Number: US-PFIZER INC-2007021048

PATIENT
  Sex: Female
  Weight: 74.8 kg

DRUGS (19)
  1. CHANTIX [Suspect]
     Indication: SMOKING CESSATION THERAPY
     Dates: start: 20070301, end: 20070301
  2. LAXATIVES [Concomitant]
  3. SEROQUEL [Concomitant]
  4. REMERON [Concomitant]
  5. PRENATAL VITAMINS [Concomitant]
  6. MUCINEX [Concomitant]
  7. DILANTIN [Concomitant]
  8. NEXIUM [Concomitant]
  9. EFFEXOR [Concomitant]
  10. LAMICTAL [Concomitant]
  11. BACLOFEN [Concomitant]
  12. PERCOCET [Concomitant]
  13. METHADONE HCL [Concomitant]
  14. LORAZEPAM [Concomitant]
  15. NEURONTIN [Concomitant]
  16. CLONAZEPAM [Concomitant]
  17. OXYBUTYNIN CHLORIDE [Concomitant]
  18. FOSAMAX [Concomitant]
  19. DRUG, UNSPECIFIED [Concomitant]

REACTIONS (4)
  - DIPLOPIA [None]
  - EYE DISORDER [None]
  - PANIC ATTACK [None]
  - PHOTOPSIA [None]
